FAERS Safety Report 5826734-X (Version None)
Quarter: 2008Q3

REPORT INFORMATION
  Report Type: 
  Country: None (occurrence: None)
  Receive Date: 20080728
  Receipt Date: 20080728
  Transmission Date: 20090109
  Serious: Yes (Disabling, Other)
  Sender: FDA-Public Use
  Company Number: None

PATIENT
  Age: 44 Year
  Sex: Male
  Weight: 179.6244 kg

DRUGS (2)
  1. DYAZIDE [Suspect]
     Indication: MYOCARDIAL INFARCTION
     Dosage: 1 DAY PO
     Route: 048
     Dates: start: 20040101, end: 20080601
  2. DYAZIDE [Suspect]
     Dosage: 1 DAY PO
     Route: 048

REACTIONS (1)
  - DIABETES MELLITUS [None]
